FAERS Safety Report 6141168-9 (Version None)
Quarter: 2009Q2

REPORT INFORMATION
  Report Type: 
  Country: None (occurrence: None)
  Receive Date: 20090401
  Receipt Date: 20090401
  Transmission Date: 20091009
  Serious: Yes (Hospitalization)
  Sender: FDA-Public Use
  Company Number: None

PATIENT
  Age: 77 Year
  Sex: Female

DRUGS (13)
  1. AMIODARONE HCL [Suspect]
     Indication: ATRIAL FIBRILLATION
     Dosage: 150 MG, INTRAVENOUS BOLUS
     Route: 040
  2. AMIODARONE HCL [Suspect]
     Indication: ATRIAL FIBRILLATION
     Dosage: 600 MG  INTRAVENOUS
     Route: 042
  3. FUROSEMIDE [Concomitant]
  4. RAMIPRIL [Concomitant]
  5. SPIRONOLACTONE [Concomitant]
  6. GLICLAZIDE [Concomitant]
  7. TICLOPIDINE HCL [Concomitant]
  8. DIGOXIN [Concomitant]
  9. ALPRAZOLAM [Concomitant]
  10. CEFTRIAXONE [Concomitant]
  11. ENOXAPARIN SODIUM [Concomitant]
  12. GLYCERYL TRINTRATE [Concomitant]
  13. INSULIN [Concomitant]

REACTIONS (8)
  - BLOOD FIBRINOGEN INCREASED [None]
  - HEPATOCELLULAR INJURY [None]
  - HEPATOTOXICITY [None]
  - INFECTION [None]
  - INTERNATIONAL NORMALISED RATIO DECREASED [None]
  - MULTI-ORGAN FAILURE [None]
  - MYOCARDIAL ISCHAEMIA [None]
  - PROTHROMBIN TIME PROLONGED [None]
